FAERS Safety Report 9026164 (Version 1)
Quarter: 2013Q1

REPORT INFORMATION
  Report Type: Spontaneous
  Country: US (occurrence: None)
  Receive Date: 20130108
  Receipt Date: 20130108
  Transmission Date: 20140127
  Serious: Yes (Other)
  Sender: FDA-Public Use
  Company Number: 1547696

PATIENT
  Age: 69 Year
  Sex: 0

DRUGS (2)
  1. VINCRISTINE SULFATE INJECTION, USP, 1MG/ML (VINCRISTINE SULFATE) [Suspect]
     Indication: PRODUCT USED FOR UNKNOWN INDICATION
  2. DOXORUBICIN [Suspect]

REACTIONS (1)
  - Flank pain [None]
